FAERS Safety Report 23262952 (Version 2)
Quarter: 2024Q3

REPORT INFORMATION
  Report Type: Spontaneous
  Country: US (occurrence: US)
  Receive Date: 20231205
  Receipt Date: 20240927
  Transmission Date: 20241016
  Serious: Yes (Hospitalization, Other)
  Sender: RANBAXY
  Company Number: US-SUN PHARMACEUTICAL INDUSTRIES LTD-2023R1-421539

PATIENT
  Age: 69 Year
  Sex: Female

DRUGS (2)
  1. METHOTREXATE [Suspect]
     Active Substance: METHOTREXATE
     Indication: Pemphigoid
     Dosage: 15 MILLIGRAM, WEEKLY
     Route: 065
  2. FOLIC ACID [Concomitant]
     Active Substance: FOLIC ACID
     Indication: Pemphigoid
     Dosage: 1 MILLIGRAM, DAILY
     Route: 065

REACTIONS (1)
  - Hypersensitivity pneumonitis [Recovered/Resolved]
